FAERS Safety Report 9200305 (Version 1)
Quarter: 2013Q1

REPORT INFORMATION
  Report Type: Spontaneous
  Country: US (occurrence: US)
  Receive Date: 20130329
  Receipt Date: 20130329
  Transmission Date: 20140127
  Serious: Yes (Other)
  Sender: FDA-Public Use
  Company Number: CHPA2013US005304

PATIENT
  Age: 79 Year
  Sex: Female

DRUGS (5)
  1. EXCEDRIN EXTRA STRENGTH [Suspect]
     Indication: ARTHRITIS
     Dosage: 2 DF, QD
     Route: 048
     Dates: start: 2011, end: 201201
  2. EXCEDRIN EXTRA STRENGTH [Suspect]
     Indication: HEADACHE
     Dosage: UNK, UNK
     Route: 048
     Dates: start: 1993, end: 2011
  3. MULTIVITAMIN//VITAMINS NOS [Concomitant]
  4. ST. JOSEPH ASPIRIN [Concomitant]
  5. BAYER ASPIRIN [Concomitant]

REACTIONS (3)
  - Diarrhoea [Recovered/Resolved]
  - Ulcer [Unknown]
  - Incorrect drug administration duration [Unknown]
